FAERS Safety Report 9548714 (Version 1)
Quarter: 2013Q3

REPORT INFORMATION
  Report Type: Spontaneous
  Country: US (occurrence: None)
  Receive Date: 20130923
  Receipt Date: 20130923
  Transmission Date: 20140515
  Serious: Yes (Disabling)
  Sender: FDA-Public Use
  Company Number: None

PATIENT
  Age: 72 Year
  Sex: Female
  Weight: 77.11 kg

DRUGS (1)
  1. IRON [Suspect]
     Indication: BLOOD DISORDER
     Dosage: 1 / DAY; ONCE DAILY
     Route: 048
     Dates: start: 20130630, end: 20130830

REACTIONS (1)
  - Product odour abnormal [None]
